FAERS Safety Report 8112006-X (Version None)
Quarter: 2012Q1

REPORT INFORMATION
  Report Type: 
  Country: None (occurrence: None)
  Receive Date: 20120131
  Receipt Date: 20120118
  Transmission Date: 20120608
  Serious: Yes (Other)
  Sender: FDA-Public Use
  Company Number: TPA2012A00385

PATIENT
  Age: 51 Year
  Sex: Female
  Weight: 61.6892 kg

DRUGS (13)
  1. RISPERDAL [Concomitant]
  2. COMBIVENT (SALBUTAMOL, IPRATROPIUM BROMIDE) [Concomitant]
  3. ADVAIR HFA [Concomitant]
  4. TRICOR [Concomitant]
  5. METFORMIN HCL [Concomitant]
  6. INDOCIN [Concomitant]
  7. PRAVASTATIN [Concomitant]
  8. GABAPENTIN [Concomitant]
  9. ACTOS [Suspect]
     Indication: TYPE 2 DIABETES MELLITUS
     Dosage: 1 IN 1 D
     Dates: start: 20110101
  10. LISINOPRIL [Concomitant]
  11. OMEPRAZOLE [Concomitant]
  12. SYNTHROID [Concomitant]
  13. CITALOPRAM HYDROBROMIDE [Concomitant]

REACTIONS (2)
  - PAIN [None]
  - HEPATITIS C [None]
